FAERS Safety Report 14824210 (Version 2)
Quarter: 2019Q2

REPORT INFORMATION
  Report Type: Spontaneous
  Country: US (occurrence: US)
  Receive Date: 20180428
  Receipt Date: 20190426
  Transmission Date: 20190711
  Serious: Yes (Other)
  Sender: FDA-Public Use
  Company Number: US-TAKEDA-2018TUS013765

PATIENT

DRUGS (31)
  1. NEXIUM [Suspect]
     Active Substance: ESOMEPRAZOLE MAGNESIUM
     Indication: GASTROOESOPHAGEAL REFLUX DISEASE
  2. SINGULAIR [Concomitant]
     Active Substance: MONTELUKAST SODIUM
  3. ZESTORETIC [Concomitant]
     Active Substance: HYDROCHLOROTHIAZIDE\LISINOPRIL
  4. NIACIN. [Concomitant]
     Active Substance: NIACIN
  5. TENORMIN [Concomitant]
     Active Substance: ATENOLOL
  6. ZANAFLEX [Concomitant]
     Active Substance: TIZANIDINE HYDROCHLORIDE
     Dosage: UNK
  7. DEXILANT [Suspect]
     Active Substance: DEXLANSOPRAZOLE
     Indication: PRODUCT USED FOR UNKNOWN INDICATION
     Dosage: UNK
     Route: 048
     Dates: start: 1997, end: 2016
  8. LEVOTHYROXIN [Concomitant]
     Active Substance: LEVOTHYROXINE
  9. LISINOPRIL. [Concomitant]
     Active Substance: LISINOPRIL
  10. VITAMIN D3 [Concomitant]
     Active Substance: CHOLECALCIFEROL
  11. NEXIUM [Suspect]
     Active Substance: ESOMEPRAZOLE MAGNESIUM
     Indication: GASTROOESOPHAGEAL REFLUX DISEASE
     Dosage: 40 MILLIGRAM
     Route: 048
     Dates: start: 20131210, end: 20170406
  12. COLCHICINE. [Concomitant]
     Active Substance: COLCHICINE
  13. PROTONIX [Suspect]
     Active Substance: PANTOPRAZOLE SODIUM
     Indication: GASTROOESOPHAGEAL REFLUX DISEASE
     Dosage: UNK
     Route: 048
     Dates: start: 20130920, end: 20190108
  14. NEXIUM [Suspect]
     Active Substance: ESOMEPRAZOLE MAGNESIUM
     Indication: DYSPEPSIA
  15. PROTONIX [Suspect]
     Active Substance: PANTOPRAZOLE SODIUM
     Indication: DYSPEPSIA
     Dosage: 40 MG, 1X/DAY
     Route: 065
     Dates: start: 20180919
  16. PREVACID [Suspect]
     Active Substance: LANSOPRAZOLE
     Indication: PRODUCT USED FOR UNKNOWN INDICATION
     Dosage: UNK
     Route: 048
     Dates: start: 1997, end: 2016
  17. ACIPHEX [Suspect]
     Active Substance: RABEPRAZOLE SODIUM
     Indication: PRODUCT USED FOR UNKNOWN INDICATION
     Dosage: UNK
     Route: 048
     Dates: start: 1997, end: 2016
  18. COLACE [Concomitant]
     Active Substance: DOCUSATE SODIUM
  19. ZOFRAN [Concomitant]
     Active Substance: ONDANSETRON HYDROCHLORIDE
  20. PRAVACHOL [Concomitant]
     Active Substance: PRAVASTATIN SODIUM
  21. BIOTIN [Concomitant]
     Active Substance: BIOTIN
  22. LASIX [Concomitant]
     Active Substance: FUROSEMIDE
  23. PROTONIX [Suspect]
     Active Substance: PANTOPRAZOLE SODIUM
     Indication: GASTROOESOPHAGEAL REFLUX DISEASE
     Dosage: UNK
     Route: 065
     Dates: start: 20190108
  24. PRILOSEC [Suspect]
     Active Substance: OMEPRAZOLE MAGNESIUM
     Indication: PRODUCT USED FOR UNKNOWN INDICATION
     Dosage: UNK
     Route: 048
     Dates: start: 1997, end: 2016
  25. ATENOLOL. [Concomitant]
     Active Substance: ATENOLOL
  26. OXYCODON [Concomitant]
     Active Substance: OXYCODONE
  27. ASPIRIN                            /00002701/ [Concomitant]
     Active Substance: ASPIRIN
  28. LAMISIL [Concomitant]
     Active Substance: TERBINAFINE HYDROCHLORIDE
  29. SYNTHROID [Concomitant]
     Active Substance: LEVOTHYROXINE SODIUM
  30. VIMOVO [Suspect]
     Active Substance: ESOMEPRAZOLE MAGNESIUM\NAPROXEN
     Indication: PRODUCT USED FOR UNKNOWN INDICATION
     Dosage: UNK
     Route: 048
     Dates: start: 1997, end: 2016
  31. NORVASC [Concomitant]
     Active Substance: AMLODIPINE BESYLATE

REACTIONS (3)
  - Acute kidney injury [Unknown]
  - Chronic kidney disease [Not Recovered/Not Resolved]
  - Renal failure [Unknown]

NARRATIVE: CASE EVENT DATE: 20170510
